FAERS Safety Report 8304797-X (Version None)
Quarter: 2012Q2

REPORT INFORMATION
  Report Type: 
  Country: None (occurrence: None)
  Receive Date: 20120423
  Receipt Date: 20120416
  Transmission Date: 20120825
  Serious: Yes (Hospitalization)
  Sender: FDA-Public Use
  Company Number: BR-ASTRAZENECA-2012SE25435

PATIENT
  Age: 81 Year
  Sex: Male

DRUGS (2)
  1. SYMBICORT [Suspect]
     Dosage: 160/4.5 MCGS UNKNOWN
     Route: 055
  2. SYMBICORT [Suspect]
     Dosage: 320/9 MCGS UNKNOWN
     Route: 055

REACTIONS (3)
  - PNEUMONIA [None]
  - FATIGUE [None]
  - DYSPNOEA [None]
